FAERS Safety Report 16909299 (Version 2)
Quarter: 2019Q4

REPORT INFORMATION
  Report Type: Report from Study
  Country: JP (occurrence: JP)
  Receive Date: 20191011
  Receipt Date: 20191107
  Transmission Date: 20200122
  Serious: Yes (Other)
  Sender: FDA-Public Use
  Company Number: JP-009507513-1908JPN003032J

PATIENT
  Age: 72 Year
  Sex: Female
  Weight: 45 kg

DRUGS (1)
  1. KEYTRUDA [Suspect]
     Active Substance: PEMBROLIZUMAB
     Indication: GASTRIC CANCER
     Dosage: 200 MILLIGRAM, Q3W
     Route: 041
     Dates: start: 20190326, end: 20190716

REACTIONS (5)
  - Inappropriate antidiuretic hormone secretion [Unknown]
  - Thyroid disorder [Unknown]
  - Off label use [Unknown]
  - Erythema multiforme [Unknown]
  - Cystitis [Unknown]

NARRATIVE: CASE EVENT DATE: 20190514
